FAERS Safety Report 4344688-2 (Version None)
Quarter: 2004Q2

REPORT INFORMATION
  Report Type: 
  Country: None (occurrence: None)
  Receive Date: 20040419
  Receipt Date: 20040409
  Transmission Date: 20050107
  Serious: Yes (Hospitalization)
  Sender: FDA-Public Use
  Company Number: 2004-04-0407

PATIENT
  Age: 35 Year
  Sex: Male
  Weight: 105 kg

DRUGS (4)
  1. PEGASYS [Suspect]
     Indication: HEPATITIS C
     Dosage: 180 MCG QW
     Dates: start: 20030901
  2. REBETOL [Suspect]
     Indication: HEPATITIS C
     Dosage: ORAL
     Route: 048
     Dates: start: 20020201, end: 20030201
  3. REBETOL [Suspect]
     Indication: HEPATITIS C
     Dosage: 200 MG QD ORAL
     Route: 048
     Dates: start: 20030901
  4. VIRAFERONPEG [Suspect]
     Indication: HEPATITIS C
     Dosage: 150 MCG QWK SUBCUTANEOUS
     Route: 058
     Dates: start: 20020201, end: 20030201

REACTIONS (5)
  - CYTOLYTIC HEPATITIS [None]
  - DISEASE RECURRENCE [None]
  - HEPATIC STEATOSIS [None]
  - HEPATITIS C VIRUS [None]
  - POLYMERASE CHAIN REACTION [None]
